FAERS Safety Report 24033406 (Version 1)
Quarter: 2024Q3

REPORT INFORMATION
  Report Type: Spontaneous
  Country: US (occurrence: US)
  Receive Date: 20240701
  Receipt Date: 20240701
  Transmission Date: 20241016
  Serious: No
  Sender: UCB
  Company Number: US-UCBSA-2023045972

PATIENT
  Age: 17 Year
  Sex: Male

DRUGS (5)
  1. MIDAZOLAM [Suspect]
     Active Substance: MIDAZOLAM
     Indication: Status epilepticus
     Dosage: UNK
  2. MIDAZOLAM [Suspect]
     Active Substance: MIDAZOLAM
     Indication: Off label use
  3. NALOXONE [Concomitant]
     Active Substance: NALOXONE
     Indication: Unresponsive to stimuli
     Dosage: INTRANASAL
     Route: 045
  4. EPINEPHRINE [Concomitant]
     Active Substance: EPINEPHRINE
     Indication: Anaphylactic reaction
     Dosage: UNK
     Route: 042
  5. DIPHENHYDRAMINE [Concomitant]
     Active Substance: DIPHENHYDRAMINE
     Indication: Anaphylactic reaction
     Dosage: UNK
     Route: 042

REACTIONS (1)
  - No adverse event [Unknown]
